FAERS Safety Report 11306282 (Version 1)
Quarter: 2015Q3

REPORT INFORMATION
  Report Type: Spontaneous
  Country: US (occurrence: US)
  Receive Date: 20150723
  Receipt Date: 20150723
  Transmission Date: 20151125
  Serious: Yes (Death)
  Sender: FDA-Public Use
  Company Number: US-BAYER-2015-381544

PATIENT
  Sex: Male

DRUGS (1)
  1. BAYER LOW DOSE [Suspect]
     Active Substance: ASPIRIN
     Route: 048

REACTIONS (2)
  - Bladder cancer [Fatal]
  - Product use issue [None]

NARRATIVE: CASE EVENT DATE: 2014
